FAERS Safety Report 8252383-2 (Version None)
Quarter: 2012Q2

REPORT INFORMATION
  Report Type: 
  Country: None (occurrence: None)
  Receive Date: 20120402
  Receipt Date: 20110602
  Transmission Date: 20120825
  Serious: No
  Sender: FDA-Public Use
  Company Number: US-ABBOTT-11P-163-0804639-00

PATIENT
  Age: 52 Year
  Sex: Male

DRUGS (1)
  1. TESTOSTERONE [Suspect]
     Indication: BLOOD TESTOSTERONE DECREASED
     Dosage: DAILY DOSE: 5 GRAM(S), VIA PUMP, 4 PUMP PRESSES TOTAL
     Route: 061
     Dates: start: 20110501, end: 20110501

REACTIONS (2)
  - NERVOUSNESS [None]
  - ANXIETY [None]
